FAERS Safety Report 24210870 (Version 1)
Quarter: 2024Q3

REPORT INFORMATION
  Report Type: Spontaneous
  Country: US (occurrence: None)
  Receive Date: 20240813
  Receipt Date: 20240813
  Transmission Date: 20241017
  Serious: Yes (Other)
  Sender: Public
  Company Number: None

PATIENT
  Age: 73 Year
  Sex: Female
  Weight: 103.5 kg

DRUGS (1)
  1. PREGABALIN [Suspect]
     Active Substance: PREGABALIN
     Indication: Pain
     Dosage: OTHER QUANTITY : 25 CAPSULE(S);?FREQUENCY : 3 TIMES A DAY;?
     Route: 048

REACTIONS (4)
  - Somnolence [None]
  - Vision blurred [None]
  - Cataract operation [None]
  - Impaired driving ability [None]
